FAERS Safety Report 10952380 (Version 1)
Quarter: 2015Q1

REPORT INFORMATION
  Report Type: Spontaneous
  Country: US (occurrence: None)
  Receive Date: 20150323
  Receipt Date: 20150323
  Transmission Date: 20150721
  Serious: No
  Sender: FDA-Public Use
  Company Number: VIT-2014-02652

PATIENT
  Age: 65 Year
  Sex: Female
  Weight: 59.6 kg

DRUGS (8)
  1. TEMAZEPAM. [Concomitant]
     Active Substance: TEMAZEPAM
  2. MAG-OX (MAGNESIUM OXIDE) [Concomitant]
  3. DIALYVITE (ASCORBIC ACID) [Concomitant]
  4. ONDANSETRON [Concomitant]
     Active Substance: ONDANSETRON
  5. ALLOPURINOL. [Concomitant]
     Active Substance: ALLOPURINOL
  6. ACETYLSALICYLIC ACID [Concomitant]
     Active Substance: ASPIRIN
  7. CLOPIDOGREL [Concomitant]
     Active Substance: CLOPIDOGREL BISULFATE
  8. VELPHORO [Suspect]
     Active Substance: FERRIC OXYHYDROXIDE
     Indication: HYPERPHOSPHATAEMIA
     Route: 048
     Dates: start: 201405

REACTIONS (4)
  - Tooth discolouration [None]
  - Product quality issue [None]
  - Faeces discoloured [None]
  - Drug intolerance [None]

NARRATIVE: CASE EVENT DATE: 20141212
